FAERS Safety Report 4342176-0 (Version None)
Quarter: 2004Q1

REPORT INFORMATION
  Report Type: 
  Country: None (occurrence: None)
  Receive Date: 20040329
  Receipt Date: 20031205
  Transmission Date: 20041129
  Serious: No
  Sender: FDA-Public Use
  Company Number: USA031253999

PATIENT
  Sex: Female

DRUGS (3)
  1. STRATTERA [Suspect]
     Indication: ATTENTION DEFICIT/HYPERACTIVITY DISORDER
     Dosage: 40 MG/DAY
     Dates: start: 20031101, end: 20031205
  2. FOSAMAX [Concomitant]
  3. PREMPRO [Concomitant]

REACTIONS (4)
  - ANOREXIA [None]
  - FEELING ABNORMAL [None]
  - FOOD CRAVING [None]
  - TINNITUS [None]
